FAERS Safety Report 5320103-7 (Version None)
Quarter: 2007Q2

REPORT INFORMATION
  Report Type: 
  Country: None (occurrence: None)
  Receive Date: 20070503
  Receipt Date: 20070424
  Transmission Date: 20071010
  Serious: Yes (Other)
  Sender: FDA-Public Use
  Company Number: 232858K07USA

PATIENT
  Age: 52 Year
  Sex: Female

DRUGS (9)
  1. REBIF [Suspect]
     Indication: MULTIPLE SCLEROSIS
     Dosage: SEE IMAGE
     Route: 058
     Dates: start: 20050418, end: 20070301
  2. REBIF [Suspect]
     Indication: MULTIPLE SCLEROSIS
     Dosage: SEE IMAGE
     Route: 058
     Dates: start: 20070301
  3. ANTIBIOTICS (ANTIBIOTICS) [Concomitant]
  4. RELIV (PARACETAMOL) [Concomitant]
  5. BACLOFEN [Concomitant]
  6. NEURONTIN [Concomitant]
  7. CYMBALTA [Concomitant]
  8. LASIX [Concomitant]
  9. KLONOPIN [Concomitant]

REACTIONS (1)
  - BILIARY CIRRHOSIS PRIMARY [None]
